FAERS Safety Report 26140905 (Version 1)
Quarter: 2025Q4

REPORT INFORMATION
  Report Type: Spontaneous
  Country: US (occurrence: US)
  Receive Date: 20251210
  Receipt Date: 20251210
  Transmission Date: 20260119
  Serious: Yes (Hospitalization)
  Sender: RECKITT BENCKISER
  Company Number: US-INDIVIOR UK LIMITED-INDV-178664-2025

PATIENT

DRUGS (1)
  1. BUPRENORPHINE [Suspect]
     Active Substance: BUPRENORPHINE
     Indication: Drug withdrawal syndrome
     Dosage: UNK (HIGH- DOSE BUPRENORPHINE)
     Route: 065

REACTIONS (4)
  - Delirium [Recovered/Resolved]
  - Hypernatraemia [Recovered/Resolved]
  - Fall [Recovered/Resolved]
  - Product use issue [Recovered/Resolved]
